FAERS Safety Report 23090577 (Version 1)
Quarter: 2023Q4

REPORT INFORMATION
  Report Type: Report from Study
  Country: None (occurrence: US)
  Receive Date: 20231020
  Receipt Date: 20231020
  Transmission Date: 20240110
  Serious: Yes (Death)
  Sender: FDA-Public Use
  Company Number: US-Amphastar Pharmaceuticals, Inc.-2147289

PATIENT
  Age: 73 Year
  Sex: Female

DRUGS (3)
  1. BAQSIMI [Suspect]
     Active Substance: GLUCAGON
     Indication: Diabetes mellitus
     Route: 045
     Dates: start: 202302
  2. HUMULIN N [Suspect]
     Active Substance: INSULIN HUMAN
     Route: 065
     Dates: start: 202302
  3. TRULICITY [Suspect]
     Active Substance: DULAGLUTIDE
     Route: 065
     Dates: start: 202302

REACTIONS (1)
  - Death [Fatal]
